FAERS Safety Report 7517278-8 (Version None)
Quarter: 2011Q2

REPORT INFORMATION
  Report Type: 
  Country: None (occurrence: None)
  Receive Date: 20110601
  Receipt Date: 20110526
  Transmission Date: 20111010
  Serious: Yes (Death, Hospitalization)
  Sender: FDA-Public Use
  Company Number: ZA-ELI_LILLY_AND_COMPANY-ZA201105008069

PATIENT
  Age: 37 Year
  Sex: Female

DRUGS (1)
  1. HUMULIN N [Suspect]
     Indication: TYPE 2 DIABETES MELLITUS
     Dosage: UNK
     Dates: start: 20110510

REACTIONS (4)
  - DEATH [None]
  - LAPAROSCOPY [None]
  - DIABETIC KETOACIDOSIS [None]
  - BLOOD GLUCOSE ABNORMAL [None]
